FAERS Safety Report 14871672 (Version 3)
Quarter: 2019Q2

REPORT INFORMATION
  Report Type: Spontaneous
  Country: US (occurrence: US)
  Receive Date: 20180509
  Receipt Date: 20190411
  Transmission Date: 20190711
  Serious: Yes (Other)
  Sender: FDA-Public Use
  Company Number: US-ASTRAZENECA-2018SE58171

PATIENT
  Sex: Male
  Weight: 149.7 kg

DRUGS (21)
  1. NEXIUM [Suspect]
     Active Substance: ESOMEPRAZOLE MAGNESIUM
     Route: 048
     Dates: start: 2007, end: 2010
  2. PREVACID 24 HR [Suspect]
     Active Substance: LANSOPRAZOLE
     Route: 048
     Dates: start: 2007, end: 2010
  3. ASPIRIN. [Concomitant]
     Active Substance: ASPIRIN
     Route: 065
  4. NORCO [Concomitant]
     Active Substance: ACETAMINOPHEN\HYDROCODONE BITARTRATE
     Route: 065
  5. CALCITRIOL. [Concomitant]
     Active Substance: CALCITRIOL
     Route: 065
  6. PEPCID [Concomitant]
     Active Substance: FAMOTIDINE
  7. PREVACID [Suspect]
     Active Substance: LANSOPRAZOLE
     Route: 048
     Dates: start: 2007, end: 2010
  8. HYDRALAZINE [Concomitant]
     Active Substance: HYDRALAZINE HYDROCHLORIDE
     Indication: BLOOD PRESSURE MEASUREMENT
     Route: 065
  9. ALBUTEROL SULFATE. [Concomitant]
     Active Substance: ALBUTEROL SULFATE
     Route: 065
  10. ZANTAC [Concomitant]
     Active Substance: RANITIDINE HYDROCHLORIDE
  11. METOPROLOL TARTRATE. [Concomitant]
     Active Substance: METOPROLOL TARTRATE
     Route: 065
  12. CLONAZEPAM. [Concomitant]
     Active Substance: CLONAZEPAM
     Route: 065
  13. PRILOSEC [Suspect]
     Active Substance: OMEPRAZOLE MAGNESIUM
     Route: 048
  14. CLONIDINE. [Concomitant]
     Active Substance: CLONIDINE
     Route: 065
  15. CRESTOR [Concomitant]
     Active Substance: ROSUVASTATIN CALCIUM
     Route: 065
  16. PREDNISONE. [Concomitant]
     Active Substance: PREDNISONE
     Route: 065
  17. NORVASC [Concomitant]
     Active Substance: AMLODIPINE BESYLATE
     Route: 065
  18. BUMETANIDE. [Concomitant]
     Active Substance: BUMETANIDE
     Route: 065
  19. METHYLPREDNISOLONE. [Concomitant]
     Active Substance: METHYLPREDNISOLONE
     Route: 065
  20. PANTOPRAZOLE [Concomitant]
     Active Substance: PANTOPRAZOLE
     Route: 065
  21. TRAZODONE [Concomitant]
     Active Substance: TRAZODONE HYDROCHLORIDE
     Route: 065

REACTIONS (3)
  - Renal failure [Not Recovered/Not Resolved]
  - Chronic kidney disease [Unknown]
  - End stage renal disease [Unknown]
